FAERS Safety Report 23483382 (Version 1)
Quarter: 2024Q1

REPORT INFORMATION
  Report Type: Report from Study
  Country: US (occurrence: US)
  Receive Date: 20240205
  Receipt Date: 20240205
  Transmission Date: 20240410
  Serious: Yes (Other)
  Sender: FDA-Public Use
  Company Number: US-BAUSCH-BL-2024-001529

PATIENT
  Age: 66 Year
  Sex: Female

DRUGS (19)
  1. XIFAXAN [Suspect]
     Active Substance: RIFAXIMIN
     Indication: Product used for unknown indication
     Dosage: FOR 7 DAYS EVERY MONTH
     Route: 048
     Dates: start: 20230120
  2. XANAX [Concomitant]
     Active Substance: ALPRAZOLAM
     Indication: Anxiety
     Dosage: AS NEEDED
     Route: 048
     Dates: start: 20230310
  3. WELLBUTRIN [Concomitant]
     Active Substance: BUPROPION HYDROCHLORIDE
     Indication: Product used for unknown indication
     Route: 048
     Dates: start: 20231017
  4. VITAMIN B12 [Concomitant]
     Active Substance: CYANOCOBALAMIN
     Indication: Product used for unknown indication
     Route: 048
  5. VITAMIN B12 [Concomitant]
     Active Substance: CYANOCOBALAMIN
     Route: 048
  6. VOLTAREN [Concomitant]
     Active Substance: DICLOFENAC SODIUM
     Indication: Pain
     Dosage: DAILY AS NEEDED
     Route: 061
  7. ERGOCALCIFEROL [Concomitant]
     Active Substance: ERGOCALCIFEROL
     Indication: Product used for unknown indication
     Route: 048
     Dates: start: 20230106
  8. FERROUS SULFATE [Concomitant]
     Active Substance: FERROUS SULFATE
     Indication: Product used for unknown indication
     Route: 048
     Dates: start: 20231017
  9. LASIX [Concomitant]
     Active Substance: FUROSEMIDE
     Indication: Product used for unknown indication
     Route: 048
     Dates: start: 20231204
  10. LEVOTHYROXINE [Concomitant]
     Active Substance: LEVOTHYROXINE\LEVOTHYROXINE SODIUM
     Indication: Product used for unknown indication
     Dosage: ON EMPTY STOMACH 1 HOUR BEFORE EATING. DO NOT COMBINE WITH OTHER MEDICATIONS
     Route: 048
     Dates: start: 20230321
  11. POTASSIUM CHLORIDE [Concomitant]
     Active Substance: POTASSIUM CHLORIDE
     Indication: Product used for unknown indication
     Route: 048
  12. INDERAL [Concomitant]
     Active Substance: PROPRANOLOL HYDROCHLORIDE
     Indication: Heart rate increased
     Dosage: TAKE AS NEEDED IF HEART RATE GREATER THAN 120 BEATS PER MINUTE. MAY TAKE UP TO TWICE A DAY
     Route: 065
     Dates: start: 20230310
  13. XARELTO [Concomitant]
     Active Substance: RIVAROXABAN
     Indication: Atrial fibrillation
     Dosage: EVERY EVENING
     Route: 048
     Dates: start: 20230824
  14. XARELTO [Concomitant]
     Active Substance: RIVAROXABAN
     Indication: Embolism venous
  15. KENALOG [Concomitant]
     Active Substance: TRIAMCINOLONE ACETONIDE
     Indication: Product used for unknown indication
     Dosage: ONCE
     Route: 014
     Dates: start: 20230315
  16. DYAZIDE [Concomitant]
     Active Substance: HYDROCHLOROTHIAZIDE\TRIAMTERENE
     Indication: Product used for unknown indication
     Dosage: 37.5 MG/25 MG
     Route: 048
     Dates: start: 20231020
  17. VITAMIN A [Concomitant]
     Active Substance: VITAMIN A
     Indication: Product used for unknown indication
     Route: 048
  18. ZINC [Concomitant]
     Active Substance: PYRITHIONE ZINC\ZINC\ZINC CHLORIDE
     Indication: Product used for unknown indication
     Dosage: 1 HOUR BEFORE MEAL
     Route: 048
  19. BOSULIF [Concomitant]
     Active Substance: BOSUTINIB MONOHYDRATE
     Indication: Product used for unknown indication
     Route: 048

REACTIONS (16)
  - Atrial fibrillation [Unknown]
  - Chronic myeloid leukaemia [Unknown]
  - Aortic stenosis [Unknown]
  - Atrial flutter [Unknown]
  - Obesity [Unknown]
  - Bundle branch block left [Unknown]
  - Essential hypertension [Unknown]
  - Peripheral venous disease [Unknown]
  - Short-bowel syndrome [Unknown]
  - Gastrointestinal bacterial overgrowth [Unknown]
  - Panic attack [Unknown]
  - Hypoalbuminaemia [Unknown]
  - Osteoarthritis [Unknown]
  - Anxiety [Unknown]
  - Depression [Unknown]
  - Oedema peripheral [Unknown]
